FAERS Safety Report 10434274 (Version 4)
Quarter: 2014Q3

REPORT INFORMATION
  Report Type: Spontaneous
  Country: IN (occurrence: IN)
  Receive Date: 20140905
  Receipt Date: 20140919
  Transmission Date: 20150326
  Serious: Yes (Life-Threatening, Hospitalization, Disabling, Other)
  Sender: FDA-Public Use
  Company Number: IN-LUNDBECK-DKLU1103111

PATIENT
  Age: 4 Year
  Sex: Male

DRUGS (3)
  1. ZINCOVIT SYRUP [Concomitant]
     Indication: PRODUCT USED FOR UNKNOWN INDICATION
  2. FRISIUM [Suspect]
     Active Substance: CLOBAZAM
     Indication: FEBRILE CONVULSION
     Route: 048
     Dates: start: 20120504, end: 20120519
  3. ZENTEL [Concomitant]
     Active Substance: ALBENDAZOLE
     Indication: PRODUCT USED FOR UNKNOWN INDICATION

REACTIONS (1)
  - Stevens-Johnson syndrome [Unknown]

NARRATIVE: CASE EVENT DATE: 20120519
